FAERS Safety Report 12922567 (Version 1)
Quarter: 2016Q4

REPORT INFORMATION
  Report Type: Spontaneous
  Country: HR (occurrence: HR)
  Receive Date: 20161108
  Receipt Date: 20161108
  Transmission Date: 20170207
  Serious: Yes (Other)
  Sender: FDA-Public Use
  Company Number: HR-TEVA-708506ACC

PATIENT
  Sex: Male

DRUGS (1)
  1. ODONAZIN [Suspect]
     Active Substance: MIRTAZAPINE
     Route: 048
     Dates: start: 201608, end: 201608

REACTIONS (1)
  - Coma [Unknown]

NARRATIVE: CASE EVENT DATE: 201608
